FAERS Safety Report 12829941 (Version 1)
Quarter: 2016Q4

REPORT INFORMATION
  Report Type: Spontaneous
  Country: US (occurrence: US)
  Receive Date: 20161007
  Receipt Date: 20161007
  Transmission Date: 20170207
  Serious: No
  Sender: FDA-Public Use
  Company Number: US-SA-2016SA083067

PATIENT
  Age: 36 Year
  Sex: Female

DRUGS (3)
  1. AUBAGIO [Suspect]
     Active Substance: TERIFLUNOMIDE
     Indication: MULTIPLE SCLEROSIS
     Route: 048
     Dates: start: 201602
  2. CIPRO [Interacting]
     Active Substance: CIPROFLOXACIN HYDROCHLORIDE
     Indication: CONJUNCTIVITIS
     Route: 065
     Dates: start: 201604
  3. SULF 10 [Interacting]
     Active Substance: SULFACETAMIDE SODIUM
     Indication: CONJUNCTIVITIS
     Route: 065
     Dates: start: 20160411

REACTIONS (2)
  - Conjunctivitis [Not Recovered/Not Resolved]
  - Drug interaction [Unknown]

NARRATIVE: CASE EVENT DATE: 201604
